FAERS Safety Report 21967464 (Version 4)
Quarter: 2023Q2

REPORT INFORMATION
  Report Type: Report from Study
  Country: FR (occurrence: FR)
  Receive Date: 20230208
  Receipt Date: 20230613
  Transmission Date: 20230722
  Serious: Yes (Other)
  Sender: FDA-Public Use
  Company Number: FR-ACRAF SpA-2023-029829

PATIENT

DRUGS (2)
  1. XCOPRI [Suspect]
     Active Substance: CENOBAMATE
     Indication: Epilepsy
     Dosage: PROGRESSIVE DOSE ADJUSTMENT WITH INCREASE OF 25MG EVERY 15 DAYS SINCE DECEMBER 2022 FOR 2 MONTHS
     Route: 048
     Dates: start: 202212
  2. XCOPRI [Suspect]
     Active Substance: CENOBAMATE
     Dosage: 50 MILLIGRAM, QD
     Route: 048

REACTIONS (10)
  - Hyperprolactinaemia [Recovering/Resolving]
  - Amenorrhoea [Recovering/Resolving]
  - Weight increased [Recovering/Resolving]
  - Feeling cold [Recovering/Resolving]
  - Thyroid disorder [Recovering/Resolving]
  - Off label use [Not Recovered/Not Resolved]
  - Diarrhoea [Recovering/Resolving]
  - Constipation [Recovering/Resolving]
  - Asthenia [Recovering/Resolving]
  - Irritability [Recovering/Resolving]
